FAERS Safety Report 8847298 (Version 2)
Quarter: 2013Q1

REPORT INFORMATION
  Report Type: Spontaneous
  Country: US (occurrence: US)
  Receive Date: 20121018
  Receipt Date: 20130319
  Transmission Date: 20140127
  Serious: No
  Sender: FDA-Public Use
  Company Number: US-PFIZER INC-2012258197

PATIENT
  Sex: 0

DRUGS (2)
  1. SOLU-CORTEF [Suspect]
     Indication: ADRENOGENITAL SYNDROME
     Dosage: UNK
  2. SOLU-CORTEF [Suspect]
     Dosage: UNK

REACTIONS (3)
  - Wrong technique in drug usage process [Unknown]
  - Infusion site erythema [Unknown]
  - Infusion site pain [Unknown]
